FAERS Safety Report 6403211-9 (Version None)
Quarter: 2009Q4

REPORT INFORMATION
  Report Type: 
  Country: None (occurrence: None)
  Receive Date: 20091015
  Receipt Date: 20091015
  Transmission Date: 20100525
  Serious: Yes (Hospitalization, Disabling)
  Sender: FDA-Public Use
  Company Number: None

PATIENT
  Age: 53 Year
  Sex: Female
  Weight: 63.5036 kg

DRUGS (5)
  1. VIVITROL [Suspect]
     Indication: ALCOHOLISM
     Dosage: 380MG ONCE DEEP IM INJECTION GIVEN INJECTION ON 8-27-2009
     Route: 030
     Dates: start: 20090827
  2. CYMBALTA [Concomitant]
  3. PREMPRO [Concomitant]
  4. RAMIPRIL [Concomitant]
  5. CAMPRAL [Concomitant]

REACTIONS (6)
  - INJECTION SITE ERYTHEMA [None]
  - INJECTION SITE PAIN [None]
  - INJECTION SITE REACTION [None]
  - INJECTION SITE SWELLING [None]
  - OPEN WOUND [None]
  - WOUND SECRETION [None]
